FAERS Safety Report 5906726-2 (Version None)
Quarter: 2008Q4

REPORT INFORMATION
  Report Type: 
  Country: None (occurrence: None)
  Receive Date: 20081002
  Receipt Date: 20080923
  Transmission Date: 20090506
  Serious: Yes (Disabling, Other)
  Sender: FDA-Public Use
  Company Number: GB-MERCK-0809GBR00019

PATIENT
  Age: 62 Year
  Sex: Male
  Weight: 88 kg

DRUGS (6)
  1. ZOCOR [Suspect]
     Indication: PROPHYLAXIS
     Route: 048
     Dates: start: 20030101
  2. CARVEDILOL [Concomitant]
     Indication: PROPHYLAXIS
     Route: 048
     Dates: start: 20030101
  3. ASPIRIN [Concomitant]
     Indication: PROPHYLAXIS
     Route: 048
     Dates: start: 20030101
  4. OMEPRAZOLE [Concomitant]
     Indication: PROPHYLAXIS AGAINST GASTROINTESTINAL ULCER
     Route: 065
  5. SPIRONOLACTONE [Concomitant]
     Indication: CARDIAC FAILURE
     Route: 065
  6. FUROSEMIDE [Concomitant]
     Indication: CARDIAC FAILURE
     Route: 065

REACTIONS (3)
  - ABNORMAL DREAMS [None]
  - CARDIAC FAILURE [None]
  - HYPERTENSION [None]
